FAERS Safety Report 4674357-0 (Version None)
Quarter: 2005Q2

REPORT INFORMATION
  Report Type: 
  Country: None (occurrence: None)
  Receive Date: 20050524
  Receipt Date: 20050510
  Transmission Date: 20051028
  Serious: Yes (Other)
  Sender: FDA-Public Use
  Company Number: USA050597773

PATIENT
  Age: 46 Year
  Sex: Male

DRUGS (1)
  1. PERGOLIDE MESYLATE [Suspect]
     Indication: RESTLESS LEGS SYNDROME
     Dosage: 1 MG/1 AT BEDTIME
     Dates: start: 20050502, end: 20050502

REACTIONS (5)
  - BLOOD PRESSURE DECREASED [None]
  - HYPERHIDROSIS [None]
  - LOSS OF CONSCIOUSNESS [None]
  - PALLOR [None]
  - PULSE ABSENT [None]
